FAERS Safety Report 7604068-0 (Version None)
Quarter: 2011Q3

REPORT INFORMATION
  Report Type: 
  Country: None (occurrence: None)
  Receive Date: 20110711
  Receipt Date: 20110711
  Transmission Date: 20111222
  Serious: Yes (Other)
  Sender: FDA-Public Use
  Company Number: None

PATIENT
  Age: 22 Year
  Sex: Male
  Weight: 63.5036 kg

DRUGS (9)
  1. SEROQUEL [Suspect]
     Indication: OBSESSIVE-COMPULSIVE DISORDER
     Dosage: 300 MG ONCE BEFORE BED PO STILL TAPERING OFF
     Route: 048
     Dates: start: 20100101, end: 20110707
  2. FLUVOXAMINE [Concomitant]
  3. LEXAPRO [Concomitant]
  4. CLONAZEPAM [Suspect]
     Indication: DERMATILLOMANIA
     Dosage: 1 MG 3 TIME DAILY PO STILL TAPERING OFF
     Route: 048
     Dates: start: 20090815, end: 20110707
  5. CLONAZEPAM [Suspect]
     Indication: ANXIETY
     Dosage: 1 MG 3 TIME DAILY PO STILL TAPERING OFF
     Route: 048
     Dates: start: 20090815, end: 20110707
  6. MINOCYCLINE HCL [Concomitant]
  7. WELLBUTRIN [Concomitant]
  8. LAMOTRIGINE [Concomitant]
  9. ISOTRETINOIN [Concomitant]

REACTIONS (6)
  - DRUG DEPENDENCE [None]
  - DEPRESSION [None]
  - DISTURBANCE IN ATTENTION [None]
  - COGNITIVE DISORDER [None]
  - EDUCATIONAL PROBLEM [None]
  - THINKING ABNORMAL [None]
